FAERS Safety Report 8043511-2 (Version None)
Quarter: 2012Q1

REPORT INFORMATION
  Report Type: 
  Country: None (occurrence: None)
  Receive Date: 20120112
  Receipt Date: 20120103
  Transmission Date: 20120608
  Serious: Yes (Hospitalization)
  Sender: FDA-Public Use
  Company Number: FR-ASTRAZENECA-2012SE01210

PATIENT
  Age: 71 Year
  Sex: Female

DRUGS (4)
  1. NEXIUM [Suspect]
     Indication: GASTRITIS
     Route: 048
     Dates: start: 20110607, end: 20110620
  2. LEVOTHYROXINE SODIUM [Concomitant]
     Route: 048
  3. TARKA [Concomitant]
     Dosage: 180/2 MG/D
     Route: 048
  4. CALCIUM CARBONATE [Concomitant]
     Route: 048

REACTIONS (2)
  - HYPERAMMONAEMIA [None]
  - HEPATIC ENCEPHALOPATHY [None]
